FAERS Safety Report 9005543 (Version 1)
Quarter: 2013Q1

REPORT INFORMATION
  Report Type: Spontaneous
  Country: JP (occurrence: JP)
  Receive Date: 20130109
  Receipt Date: 20130109
  Transmission Date: 20140127
  Serious: Yes (Other)
  Sender: FDA-Public Use
  Company Number: JP-MYLANLABS-2013S1000042

PATIENT
  Age: 56 Year
  Sex: Female

DRUGS (8)
  1. SULFASALAZINE [Suspect]
     Indication: RHEUMATOID ARTHRITIS
     Route: 065
     Dates: start: 20100609, end: 20100726
  2. RIFAMPICIN [Suspect]
     Indication: TUBERCULOSIS
     Route: 065
     Dates: start: 20100803
  3. STREPTOMYCIN [Suspect]
     Indication: TUBERCULOSIS
     Route: 065
     Dates: start: 20100604
  4. LEVOFLOXACIN [Suspect]
     Indication: TUBERCULOSIS
     Route: 065
     Dates: start: 20100604
  5. ETHAMBUTOL [Suspect]
     Indication: TUBERCULOSIS
     Route: 065
     Dates: start: 20100604
  6. ISONIAZID [Suspect]
     Indication: TUBERCULOSIS
     Dates: start: 20100908
  7. METHOTREXATE [Suspect]
     Indication: RHEUMATOID ARTHRITIS
     Route: 065
     Dates: start: 200903, end: 20100609
  8. PREDNISOLONE [Concomitant]
     Indication: RHEUMATOID ARTHRITIS
     Dosage: 4MG
     Route: 048
     Dates: start: 200903

REACTIONS (2)
  - Drug hypersensitivity [Recovering/Resolving]
  - Interstitial lung disease [Unknown]
